FAERS Safety Report 7972530 (Version 2)
Quarter: 2022Q3

REPORT INFORMATION
  Report Type: Spontaneous
  Country: CA (occurrence: CA)
  Receive Date: 20110603
  Receipt Date: 20220729
  Transmission Date: 20221026
  Serious: Yes (Life-Threatening, Hospitalization, Other)
  Sender: FDA-Public Use
  Company Number: CA-BAYER-2010-002802

PATIENT
  Age: 30 Year
  Sex: Female

DRUGS (4)
  1. YASMIN [Suspect]
     Active Substance: DROSPIRENONE\ETHINYL ESTRADIOL
     Indication: Oral contraception
     Dosage: UNK
     Route: 048
     Dates: start: 200412, end: 20090607
  2. FLOVENT [Suspect]
     Active Substance: FLUTICASONE PROPIONATE
     Dosage: UNK
     Dates: start: 20070828
  3. ALBUTEROL [Suspect]
     Active Substance: ALBUTEROL
  4. GRAVOL [Suspect]
     Active Substance: DIMENHYDRINATE

REACTIONS (4)
  - Pulmonary embolism [Recovered/Resolved]
  - Cholelithiasis [Recovered/Resolved]
  - Abdominal pain [Recovered/Resolved]
  - Pancreatitis [Recovered/Resolved]

NARRATIVE: CASE EVENT DATE: 20090601
